FAERS Safety Report 18712131 (Version 1)
Quarter: 2021Q1

REPORT INFORMATION
  Report Type: Spontaneous
  Country: ES (occurrence: ES)
  Receive Date: 20210107
  Receipt Date: 20210107
  Transmission Date: 20210419
  Serious: Yes (Other)
  Sender: FDA-Public Use
  Company Number: ES-PFIZER INC-2020521309

PATIENT
  Age: 77 Year
  Sex: Male

DRUGS (4)
  1. TICLOPIDINE [Interacting]
     Active Substance: TICLOPIDINE
     Dosage: 500 MG, DAILY
     Dates: start: 1996
  2. TICLOPIDINE [Interacting]
     Active Substance: TICLOPIDINE
     Indication: PERIPHERAL ARTERY BYPASS
     Dosage: 250 MG, DAILY
     Dates: start: 199608
  3. PHENYTOIN SODIUM. [Suspect]
     Active Substance: PHENYTOIN SODIUM
     Indication: FOCAL DYSCOGNITIVE SEIZURES
     Dosage: 250 MG, DAILY
  4. TICLOPIDINE [Interacting]
     Active Substance: TICLOPIDINE
     Indication: VERTEBROBASILAR STROKE
     Dosage: 250 MG, DAILY
     Dates: start: 1996

REACTIONS (6)
  - Nystagmus [Recovered/Resolved]
  - Toxicity to various agents [Recovered/Resolved]
  - Nausea [Recovered/Resolved]
  - Dysarthria [Recovered/Resolved]
  - Ataxia [Recovered/Resolved]
  - Drug interaction [Recovered/Resolved]

NARRATIVE: CASE EVENT DATE: 1996
